FAERS Safety Report 13302826 (Version 1)
Quarter: 2017Q1

REPORT INFORMATION
  Report Type: Spontaneous
  Country: NL (occurrence: NL)
  Receive Date: 20170307
  Receipt Date: 20170307
  Transmission Date: 20170428
  Serious: Yes (Disabling, Other)
  Sender: FDA-Public Use
  Company Number: NL-APOTEX-2016AP010228

PATIENT
  Age: 16 Year
  Sex: Male

DRUGS (4)
  1. PAXIL [Suspect]
     Active Substance: PAROXETINE HYDROCHLORIDE
     Indication: DEPRESSION
     Dosage: 20 MG, UNK
     Route: 065
     Dates: start: 20010626, end: 20011115
  2. PAROXETINE TABLET [Suspect]
     Active Substance: PAROXETINE
     Indication: DEPRESSION
     Dosage: UNK
     Route: 065
     Dates: start: 20011116, end: 20020608
  3. FLUVOXAMINEMALEAAT APOTEX, TABLETTEN [Suspect]
     Active Substance: FLUVOXAMINE MALEATE
     Indication: DEPRESSION
     Dosage: UNK
     Route: 065
     Dates: start: 20020628
  4. PROMETHAZINE [Concomitant]
     Active Substance: PROMETHAZINE\PROMETHAZINE HYDROCHLORIDE
     Indication: PRODUCT USED FOR UNKNOWN INDICATION
     Dosage: UNK
     Route: 065
     Dates: start: 20011031

REACTIONS (14)
  - Photophobia [Unknown]
  - Derealisation [Unknown]
  - Nightmare [Unknown]
  - Aggression [Recovered/Resolved]
  - Asthenia [Unknown]
  - Affect lability [Unknown]
  - Anxiety [Unknown]
  - Abnormal behaviour [Unknown]
  - Suicidal ideation [Recovered/Resolved]
  - Hyperacusis [Unknown]
  - Major depression [Unknown]
  - Emotional disorder [Unknown]
  - Psychotic disorder [Unknown]
  - Suicide attempt [Unknown]

NARRATIVE: CASE EVENT DATE: 20011028
